FAERS Safety Report 10439907 (Version 1)
Quarter: 2014Q3

REPORT INFORMATION
  Report Type: Spontaneous
  Country: US (occurrence: US)
  Receive Date: 20140908
  Receipt Date: 20140908
  Transmission Date: 20150326
  Serious: No
  Sender: FDA-Public Use
  Company Number: US-ELI_LILLY_AND_COMPANY-US201408008314

PATIENT
  Age: 62 Year
  Sex: Female

DRUGS (1)
  1. HUMULIN 70/30 [Suspect]
     Active Substance: INSULIN HUMAN
     Indication: PRODUCT USED FOR UNKNOWN INDICATION
     Dosage: UNK
     Route: 065

REACTIONS (5)
  - Presyncope [Unknown]
  - Blood glucose decreased [Recovered/Resolved]
  - Drug dose omission [Unknown]
  - Blood glucose increased [Unknown]
  - Dizziness [Unknown]

NARRATIVE: CASE EVENT DATE: 20140814
